FAERS Safety Report 17847031 (Version 1)
Quarter: 2020Q2

REPORT INFORMATION
  Report Type: Spontaneous
  Country: US (occurrence: US)
  Receive Date: 20200601
  Receipt Date: 20200601
  Transmission Date: 20200714
  Serious: Yes (Other)
  Sender: FDA-Public Use
  Company Number: US-PFIZER INC-2020211713

PATIENT
  Age: 42 Year
  Sex: Female
  Weight: 57.15 kg

DRUGS (2)
  1. ZYVOX [Suspect]
     Active Substance: LINEZOLID
     Dosage: 15 ML, 1X/DAY
     Route: 048
  2. ZYVOX [Suspect]
     Active Substance: LINEZOLID
     Dosage: 15 ML, 2X/DAY
     Route: 048

REACTIONS (8)
  - Nausea [Unknown]
  - Vomiting [Unknown]
  - Gastrointestinal haemorrhage [Unknown]
  - Vein rupture [Unknown]
  - Angiopathy [Unknown]
  - Rash [Unknown]
  - Weight decreased [Unknown]
  - Off label use [Unknown]
